FAERS Safety Report 6003251-8 (Version None)
Quarter: 2008Q4

REPORT INFORMATION
  Report Type: 
  Country: None (occurrence: None)
  Receive Date: 20081212
  Receipt Date: 20081212
  Transmission Date: 20090506
  Serious: Yes (Life-Threatening, Hospitalization, Disabling, Other)
  Sender: FDA-Public Use
  Company Number: None

PATIENT
  Age: 65 Year
  Sex: Male
  Weight: 101 kg

DRUGS (6)
  1. ERBITUX [Suspect]
     Indication: COLON CANCER
     Dosage: 880MG IV DRIP
     Route: 041
     Dates: start: 20081210, end: 20081210
  2. METFORMIN HCL [Concomitant]
  3. TOPROL-XL [Concomitant]
  4. LIPITOR [Concomitant]
  5. FLOMAX [Concomitant]
  6. TRAMADOL [Concomitant]

REACTIONS (7)
  - CARDIAC ARREST [None]
  - DYSPNOEA [None]
  - HYPERHIDROSIS [None]
  - MYOCARDIAL INFARCTION [None]
  - PRURITUS [None]
  - RENAL FAILURE [None]
  - UNRESPONSIVE TO STIMULI [None]
